FAERS Safety Report 7547651-3 (Version None)
Quarter: 2011Q2

REPORT INFORMATION
  Report Type: 
  Country: None (occurrence: None)
  Receive Date: 20110614
  Receipt Date: 20110325
  Transmission Date: 20111010
  Serious: Yes (Other)
  Sender: FDA-Public Use
  Company Number: JP-MERCK-1103USA03810

PATIENT
  Age: 63 Year
  Sex: Male

DRUGS (14)
  1. URSO 250 [Concomitant]
     Route: 065
  2. HYZAAR [Concomitant]
     Indication: HYPERTENSION
     Route: 048
  3. LENDORMIN [Concomitant]
     Route: 065
  4. PYRAZINAMIDE [Concomitant]
     Route: 065
     Dates: end: 20080601
  5. SPELEAR [Concomitant]
     Route: 065
  6. MAGNESIUM OXIDE [Concomitant]
     Route: 065
  7. ETHIONAMIDE [Concomitant]
     Route: 065
     Dates: start: 20080701, end: 20080801
  8. RIFABUTIN [Concomitant]
     Route: 065
     Dates: start: 20090101, end: 20090501
  9. LEVOFLOXACIN [Concomitant]
     Route: 065
     Dates: start: 20080701, end: 20090801
  10. CYCLOSERINE [Suspect]
     Route: 048
     Dates: start: 20080701
  11. RIFAMPIN [Concomitant]
     Route: 065
     Dates: end: 20080601
  12. PEPCID RPD [Suspect]
     Route: 048
  13. ETHAMBUTOL HYDROCHLORIDE [Concomitant]
     Route: 065
     Dates: end: 20080601
  14. STREPTOMYCIN [Concomitant]
     Route: 065
     Dates: start: 20080701, end: 20090801

REACTIONS (1)
  - DRUG ERUPTION [None]
